FAERS Safety Report 23336460 (Version 1)
Quarter: 2023Q4

REPORT INFORMATION
  Report Type: Report from Study
  Country: US (occurrence: US)
  Receive Date: 20231225
  Receipt Date: 20231225
  Transmission Date: 20240109
  Serious: Yes (Other)
  Sender: FDA-Public Use
  Company Number: US-ABBVIE-5553751

PATIENT
  Sex: Male

DRUGS (2)
  1. SKYRIZI [Suspect]
     Active Substance: RISANKIZUMAB-RZAA
     Indication: Psoriasis
     Dosage: WEEK 4?FORM STRENGTH: 150 MILLIGRAM/MILLILITERS
     Route: 058
     Dates: start: 20231112
  2. SKYRIZI [Suspect]
     Active Substance: RISANKIZUMAB-RZAA
     Indication: Psoriatic arthropathy
     Dosage: WEEK 0?FORM STRENGTH: 150 MILLIGRAM/MILLILITERS
     Route: 058
     Dates: start: 20230928, end: 20230928

REACTIONS (2)
  - Knee arthroplasty [Unknown]
  - Pruritus [Unknown]

NARRATIVE: CASE EVENT DATE: 20230101
